FAERS Safety Report 15615304 (Version 1)
Quarter: 2018Q4

REPORT INFORMATION
  Report Type: Spontaneous
  Country: US (occurrence: US)
  Receive Date: 20181114
  Receipt Date: 20181114
  Transmission Date: 20190205
  Serious: No
  Sender: FDA-Public Use
  Company Number: US-IROKO PHARMACEUTICALS LLC-US-I09001-18-00048

PATIENT
  Sex: Male

DRUGS (2)
  1. INDOCIN [Suspect]
     Active Substance: INDOMETHACIN
     Route: 048
  2. INDOCIN [Suspect]
     Active Substance: INDOMETHACIN
     Indication: OSTEOMYELITIS
     Route: 048
     Dates: start: 2014

REACTIONS (3)
  - Product storage error [Unknown]
  - Drug ineffective for unapproved indication [Unknown]
  - No adverse event [Unknown]
